FAERS Safety Report 23798085 (Version 2)
Quarter: 2024Q2

REPORT INFORMATION
  Report Type: Spontaneous
  Country: US (occurrence: US)
  Receive Date: 20240430
  Receipt Date: 20240513
  Transmission Date: 20240716
  Serious: No
  Sender: FDA-Public Use
  Company Number: US-HALEON-2170166

PATIENT
  Age: 72 Year
  Sex: Female

DRUGS (2)
  1. GAVISCON EXTRA STRENGTH [Suspect]
     Active Substance: ALUMINUM HYDROXIDE\MAGNESIUM CARBONATE
     Indication: Abdominal discomfort
     Dosage: EXPDATE:202608 AFTER EVERY MEAL FOR SEVERAL YEARS NOW.
     Dates: start: 20240410
  2. TUMS [Suspect]
     Active Substance: CALCIUM CARBONATE
     Indication: Abdominal discomfort

REACTIONS (3)
  - Drug effective for unapproved indication [Unknown]
  - Drug ineffective for unapproved indication [Unknown]
  - Product use in unapproved indication [Unknown]
